FAERS Safety Report 4509972-8 (Version None)
Quarter: 2004Q4

REPORT INFORMATION
  Report Type: 
  Country: None (occurrence: None)
  Receive Date: 20041124
  Receipt Date: 20041117
  Transmission Date: 20050328
  Serious: Yes (Hospitalization, Other)
  Sender: FDA-Public Use
  Company Number: MY-ABBOTT-04P-101-0281074-00

PATIENT
  Sex: Male
  Weight: 68.5 kg

DRUGS (33)
  1. GENGRAF [Suspect]
     Indication: IMMUNOSUPPRESSION
     Dosage: 75-100 MILLIGRAMS
     Route: 048
     Dates: start: 20030601
  2. GENGRAF [Suspect]
     Dates: start: 20030919
  3. SIROLIMUS [Suspect]
     Indication: IMMUNOSUPPRESSION
     Route: 048
     Dates: start: 20030601
  4. SIROLIMUS [Suspect]
     Dates: start: 20030919
  5. PREDNISOLONE [Suspect]
     Indication: IMMUNOSUPPRESSION
     Route: 048
     Dates: start: 20030601
  6. PREDNISOLONE [Suspect]
     Dates: start: 20030919
  7. ISOSORBIDE DINITRATE [Concomitant]
     Indication: ANGINA PECTORIS
     Route: 048
     Dates: start: 20030916
  8. NITROGLYCERIN [Concomitant]
     Indication: DRUG USE FOR UNKNOWN INDICATION
     Route: 060
     Dates: start: 20030916
  9. ASPIRIN [Concomitant]
     Indication: DRUG USE FOR UNKNOWN INDICATION
     Route: 048
     Dates: start: 20031013
  10. ASPIRIN [Concomitant]
     Dates: start: 20030919
  11. VASTAREL [Concomitant]
     Indication: DRUG USE FOR UNKNOWN INDICATION
     Route: 048
     Dates: start: 20030916
  12. VASTAREL [Concomitant]
     Dates: start: 20030919
  13. BACTRIM [Concomitant]
     Indication: DRUG USE FOR UNKNOWN INDICATION
     Route: 048
     Dates: start: 20030916
  14. ACTRAPID/MONOTARD [Concomitant]
     Indication: DRUG USE FOR UNKNOWN INDICATION
     Route: 058
  15. MINOXIDIL [Concomitant]
     Indication: DRUG USE FOR UNKNOWN INDICATION
     Route: 048
     Dates: start: 20030930
  16. MINOXIDIL [Concomitant]
     Route: 048
     Dates: start: 20030919
  17. RANITIDINE HYDROCHLORIDE [Concomitant]
     Indication: DRUG USE FOR UNKNOWN INDICATION
     Route: 048
  18. RANITIDINE HYDROCHLORIDE [Concomitant]
     Dates: start: 20030919
  19. LOVASTATIN [Concomitant]
     Indication: DRUG USE FOR UNKNOWN INDICATION
     Route: 048
  20. NICORANDIL [Concomitant]
     Indication: DRUG USE FOR UNKNOWN INDICATION
     Dates: start: 20040114
  21. CLOPIDOGREL BISULFATE [Concomitant]
     Indication: DRUG USE FOR UNKNOWN INDICATION
     Dates: start: 20040114
  22. MECOBALAMIN [Concomitant]
     Indication: DRUG USE FOR UNKNOWN INDICATION
     Dates: start: 20040114
  23. CARBAMAZEPINE [Concomitant]
     Indication: DRUG USE FOR UNKNOWN INDICATION
     Route: 048
     Dates: start: 20040114
  24. ACYCLOVIR [Concomitant]
     Indication: DRUG USE FOR UNKNOWN INDICATION
  25. METOPROLOL TARTRATE [Concomitant]
     Indication: DRUG USE FOR UNKNOWN INDICATION
     Dates: start: 20030919
  26. AMLODIPINE [Concomitant]
     Indication: DRUG USE FOR UNKNOWN INDICATION
     Dates: start: 20030919
  27. INSULIN INITARD NORDISK [Concomitant]
     Indication: DRUG USE FOR UNKNOWN INDICATION
     Dates: start: 20030919
  28. INSULIN HUMAN [Concomitant]
     Indication: DRUG USE FOR UNKNOWN INDICATION
     Dates: start: 20030919
  29. SOLBID [Concomitant]
     Indication: DRUG USE FOR UNKNOWN INDICATION
  30. BEPLAST [Concomitant]
     Indication: DRUG USE FOR UNKNOWN INDICATION
  31. MIXOGEN [Concomitant]
     Indication: DRUG USE FOR UNKNOWN INDICATION
  32. BUTOCONAZOLE [Concomitant]
     Indication: DRUG USE FOR UNKNOWN INDICATION
  33. RANBAXYS LESTIC [Concomitant]
     Indication: DRUG USE FOR UNKNOWN INDICATION

REACTIONS (4)
  - HERPES ZOSTER [None]
  - OEDEMA PERIPHERAL [None]
  - URINARY TRACT INFECTION [None]
  - URINE OUTPUT DECREASED [None]
